FAERS Safety Report 4513106-3 (Version None)
Quarter: 2004Q4

REPORT INFORMATION
  Report Type: 
  Country: None (occurrence: None)
  Receive Date: 20040928
  Receipt Date: 20040630
  Transmission Date: 20050328
  Serious: No
  Sender: FDA-Public Use
  Company Number: 04P-163-0265333-00

PATIENT
  Age: 67 Year
  Sex: Female
  Weight: 72.5755 kg

DRUGS (12)
  1. HUMIRA [Suspect]
     Indication: RHEUMATOID ARTHRITIS
     Dosage: 40 MG, 1 IN 2 WK, SUBCUTANEOUS
     Route: 058
     Dates: start: 20040406
  2. CALCIUM [Concomitant]
  3. PREDNISONE [Concomitant]
  4. PARACETAMOL [Concomitant]
  5. VICODIN [Concomitant]
  6. TRIVITA [Concomitant]
  7. CONJUGATED ESTROGEN [Concomitant]
  8. ESOMEPRAZOLE [Concomitant]
  9. ATENOLOL [Concomitant]
  10. AMOXICILLIN [Concomitant]
  11. FUROSEMIDE [Concomitant]
  12. SPIRONOLACTONE [Concomitant]

REACTIONS (6)
  - CONTUSION [None]
  - HYPOAESTHESIA [None]
  - MUSCLE CRAMP [None]
  - MUSCLE SPASMS [None]
  - MUSCULOSKELETAL STIFFNESS [None]
  - PARAESTHESIA [None]
